FAERS Safety Report 20202901 (Version 1)
Quarter: 2021Q4

REPORT INFORMATION
  Report Type: Spontaneous
  Country: US (occurrence: US)
  Receive Date: 20211218
  Receipt Date: 20211218
  Transmission Date: 20220303
  Serious: No
  Sender: FDA-Public Use
  Company Number: US-009507513-2112USA004045

PATIENT
  Sex: Female

DRUGS (1)
  1. BELSOMRA [Suspect]
     Active Substance: SUVOREXANT
     Dosage: ONE TABLET AT NIGHT
     Route: 048
     Dates: start: 20211207

REACTIONS (2)
  - Insomnia [Unknown]
  - Middle insomnia [Unknown]

NARRATIVE: CASE EVENT DATE: 20211207
